FAERS Safety Report 7511293-6 (Version None)
Quarter: 2011Q2

REPORT INFORMATION
  Report Type: 
  Country: None (occurrence: None)
  Receive Date: 20110531
  Receipt Date: 20110505
  Transmission Date: 20111010
  Serious: Yes (Hospitalization, Other)
  Sender: FDA-Public Use
  Company Number: US-BAYER-201037892NA

PATIENT
  Sex: Female
  Weight: 86.168 kg

DRUGS (2)
  1. ADIPEX [Concomitant]
     Dosage: 37.5 MG, UNK
  2. YASMIN [Suspect]
     Indication: CONTRACEPTION
     Dosage: UNK UNK, UNK
     Route: 048
     Dates: start: 20060101, end: 20060101

REACTIONS (3)
  - CHOLELITHIASIS [None]
  - GALLBLADDER INJURY [None]
  - ABORTION SPONTANEOUS [None]
